FAERS Safety Report 5770667-4 (Version None)
Quarter: 2008Q2

REPORT INFORMATION
  Report Type: 
  Country: None (occurrence: None)
  Receive Date: 20080613
  Receipt Date: 20080509
  Transmission Date: 20081010
  Serious: No
  Sender: FDA-Public Use
  Company Number: US-ABBOTT-08P-163-0451214-00

PATIENT
  Sex: Female
  Weight: 78.542 kg

DRUGS (1)
  1. HUMIRA [Suspect]
     Indication: CROHN'S DISEASE
     Route: 058
     Dates: start: 20080429

REACTIONS (5)
  - COUGH [None]
  - DRUG INEFFECTIVE [None]
  - PARANASAL SINUS HYPERSECRETION [None]
  - SINUS DISORDER [None]
  - VOMITING [None]
